FAERS Safety Report 13683006 (Version 1)
Quarter: 2017Q2

REPORT INFORMATION
  Report Type: Spontaneous
  Country: US (occurrence: US)
  Receive Date: 20170623
  Receipt Date: 20170623
  Transmission Date: 20170830
  Serious: No
  Sender: FDA-Public Use
  Company Number: US-MALLINCKRODT-T201701955

PATIENT
  Age: 57 Year
  Sex: Female

DRUGS (2)
  1. DACLIZUMAB [Suspect]
     Active Substance: DACLIZUMAB
  2. H.P. ACTHAR [Suspect]
     Active Substance: CORTICOTROPIN
     Indication: MULTIPLE SCLEROSIS
     Dosage: 80 UNITS, DAILY
     Route: 058
     Dates: start: 20151023, end: 20161115

REACTIONS (3)
  - Head discomfort [Unknown]
  - Erythema [Unknown]
  - Multiple sclerosis relapse [Unknown]

NARRATIVE: CASE EVENT DATE: 20170415
